FAERS Safety Report 21915079 (Version 2)
Quarter: 2025Q1

REPORT INFORMATION
  Report Type: Spontaneous
  Country: US (occurrence: US)
  Receive Date: 20230126
  Receipt Date: 20250123
  Transmission Date: 20250409
  Serious: No
  Sender: CATALYST PHARMA
  Company Number: US-CATALYST PHARMACEUTICALS, INC-2021CAT00513

PATIENT
  Age: 65 Year
  Sex: Female
  Weight: 57.61 kg

DRUGS (6)
  1. FIRDAPSE [Suspect]
     Active Substance: AMIFAMPRIDINE PHOSPHATE
     Indication: Myasthenic syndrome
     Dosage: 80 MG TOTAL DAILY (2 TABLETS FOUR TIMES A DAY)
     Route: 048
     Dates: start: 20190222
  2. FIRDAPSE [Suspect]
     Active Substance: AMIFAMPRIDINE PHOSPHATE
     Dosage: 3 TABLETS (30 MG), 3X/DAY; 90 MG DAILY
     Route: 048
     Dates: start: 20201106
  3. FIRDAPSE [Suspect]
     Active Substance: AMIFAMPRIDINE PHOSPHATE
     Dosage: 80 MG TOTAL DAILY (3 TABLETS EVERY MORNING, 3 TABLETS AT NOON, AND 2 TABLETS AT BEDTIME)
     Route: 048
     Dates: start: 20240913
  4. PYRIDOSTIGMINE [Concomitant]
     Active Substance: PYRIDOSTIGMINE
     Indication: Myasthenic syndrome
     Dosage: 60 MG, 2X/DAY
     Route: 065
  5. PYRIDOSTIGMINE [Concomitant]
     Active Substance: PYRIDOSTIGMINE
     Dosage: 180 MG, 1X/DAY (EXTENDED RELEASE)
     Route: 065
  6. RILUZOLE [Concomitant]
     Active Substance: RILUZOLE
     Indication: Myasthenia gravis
     Dosage: 50 MG, 2X/DAY
     Route: 065

REACTIONS (3)
  - Abdominal pain upper [Recovered/Resolved]
  - Prescribed overdose [Unknown]
  - Extra dose administered [Unknown]

NARRATIVE: CASE EVENT DATE: 20200813
